FAERS Safety Report 6235847-2 (Version None)
Quarter: 2009Q2

REPORT INFORMATION
  Report Type: 
  Country: None (occurrence: None)
  Receive Date: 20090617
  Receipt Date: 20090617
  Transmission Date: 20091009
  Serious: Yes (Other)
  Sender: FDA-Public Use
  Company Number: None

PATIENT
  Age: 30 Year
  Sex: Female
  Weight: 86.637 kg

DRUGS (1)
  1. ZICAM REMEDY SWABS [Suspect]
     Indication: NASOPHARYNGITIS
     Dosage: I SWAB EVERY 4 HOURS OTHER
     Route: 050
     Dates: start: 20090104, end: 20090110

REACTIONS (1)
  - HYPOSMIA [None]
